FAERS Safety Report 16541666 (Version 1)
Quarter: 2019Q3

REPORT INFORMATION
  Report Type: Report from Study
  Country: BR (occurrence: BR)
  Receive Date: 20190708
  Receipt Date: 20190708
  Transmission Date: 20191004
  Serious: Yes (Hospitalization, Other)
  Sender: FDA-Public Use
  Company Number: BR-UCBSA-2018009354

PATIENT
  Sex: Female
  Weight: 37 kg

DRUGS (11)
  1. CERTOLIZUMAB PEGOL [Suspect]
     Active Substance: CERTOLIZUMAB PEGOL
     Indication: RHEUMATOID ARTHRITIS
     Dosage: 400 MG, EV 4 WEEKS
     Route: 058
     Dates: start: 20170914
  2. AZATIOPRINA [Concomitant]
     Active Substance: AZATHIOPRINE
     Indication: PRODUCT USED FOR UNKNOWN INDICATION
     Dosage: 50MG  -  2 TABLETS AND A HALF
     Route: 048
     Dates: start: 201701
  3. EXODUS [Concomitant]
     Dosage: 20 MG, ONCE DAILY (QD)
     Route: 048
     Dates: start: 2013, end: 2014
  4. CERTOLIZUMAB PEGOL [Suspect]
     Active Substance: CERTOLIZUMAB PEGOL
     Dosage: 400 MILLIGRAM, EV 15 DAYS
     Route: 058
     Dates: start: 2018, end: 20190614
  5. EXODUS [Concomitant]
     Indication: ANXIETY
     Dosage: 1 TABLET / DAY
     Route: 048
     Dates: start: 2015
  6. INFLIXIMAB [Concomitant]
     Active Substance: INFLIXIMAB
     Indication: PRODUCT USED FOR UNKNOWN INDICATION
     Dosage: UNK
  7. REMICADE [Suspect]
     Active Substance: INFLIXIMAB
     Indication: PRODUCT USED FOR UNKNOWN INDICATION
     Dosage: UNK
  8. XARELTO [Concomitant]
     Active Substance: RIVAROXABAN
     Indication: THROMBOSIS
  9. METHOTREXATE. [Concomitant]
     Active Substance: METHOTREXATE
     Indication: PRODUCT USED FOR UNKNOWN INDICATION
     Dosage: UNK
  10. XARELTO [Concomitant]
     Active Substance: RIVAROXABAN
     Indication: ANTICOAGULANT THERAPY
     Dosage: 20 MG, ONCE DAILY (QD)
     Route: 048
     Dates: start: 2014, end: 2015
  11. CERTOLIZUMAB PEGOL [Suspect]
     Active Substance: CERTOLIZUMAB PEGOL
     Indication: CROHN^S DISEASE
     Dosage: UNK
     Route: 058
     Dates: start: 2014

REACTIONS (12)
  - Enteritis infectious [Not Recovered/Not Resolved]
  - Hypersensitivity [Recovered/Resolved]
  - Groin abscess [Recovered/Resolved]
  - Infection [Unknown]
  - Intestinal perforation [Recovered/Resolved]
  - Product administered at inappropriate site [Unknown]
  - Renal abscess [Recovered/Resolved]
  - Off label use [Unknown]
  - Weight decreased [Recovered/Resolved]
  - Crohn^s disease [Unknown]
  - Intestinal stenosis [Recovered/Resolved]
  - Injection site discolouration [Recovered/Resolved]

NARRATIVE: CASE EVENT DATE: 2014
